FAERS Safety Report 14002899 (Version 1)
Quarter: 2017Q3

REPORT INFORMATION
  Report Type: Spontaneous
  Country: US (occurrence: US)
  Receive Date: 20170922
  Receipt Date: 20170922
  Transmission Date: 20171128
  Serious: Yes (Other)
  Sender: FDA-Public Use
  Company Number: US-BAUSCH-BL-2017-027138

PATIENT
  Age: 67 Year
  Sex: Male
  Weight: 72.64 kg

DRUGS (1)
  1. UCERIS [Suspect]
     Active Substance: BUDESONIDE
     Indication: CROHN^S DISEASE
     Dosage: NIGHTLY
     Route: 054
     Dates: start: 201708, end: 201709

REACTIONS (5)
  - Drug effective for unapproved indication [Unknown]
  - Treatment noncompliance [Unknown]
  - Off label use [Recovered/Resolved]
  - Crohn^s disease [Unknown]
  - Disease recurrence [Unknown]

NARRATIVE: CASE EVENT DATE: 2017
